FAERS Safety Report 7213405-0 (Version None)
Quarter: 2010Q4

REPORT INFORMATION
  Report Type: 
  Country: None (occurrence: None)
  Receive Date: 20101126
  Receipt Date: 20100322
  Transmission Date: 20110411
  Serious: Yes (Disabling)
  Sender: FDA-Public Use
  Company Number: WAES 0708USA00143

PATIENT
  Age: 70 Year
  Sex: Female
  Weight: 81.6475 kg

DRUGS (2)
  1. FOSAMAX [Suspect]
     Indication: OSTEOPOROSIS
     Dosage: 70MG/WKY/PO
     Route: 048
     Dates: start: 20031101, end: 20060901
  2. VERAPMIL [Concomitant]

REACTIONS (9)
  - BRONCHITIS [None]
  - EXOSTOSIS [None]
  - MOUTH ULCERATION [None]
  - NEPHROLITHIASIS [None]
  - ORAL DISORDER [None]
  - ORAL TORUS [None]
  - OSTEONECROSIS [None]
  - PNEUMONIA [None]
  - SKIN CANCER [None]
